FAERS Safety Report 7131223-9 (Version None)
Quarter: 2010Q4

REPORT INFORMATION
  Report Type: 
  Country: None (occurrence: None)
  Receive Date: 20101201
  Receipt Date: 20101122
  Transmission Date: 20110411
  Serious: Yes (Death, Hospitalization)
  Sender: FDA-Public Use
  Company Number: CG-MERCK-1011USA03253

PATIENT
  Age: 50 Year
  Sex: Male
  Weight: 32 kg

DRUGS (1)
  1. STROMECTOL [Suspect]
     Route: 048
     Dates: start: 20101024

REACTIONS (9)
  - ASTHENIA [None]
  - BACK PAIN [None]
  - BLOOD PRESSURE DECREASED [None]
  - CONJUNCTIVAL DISORDER [None]
  - GAIT DISTURBANCE [None]
  - HEADACHE [None]
  - PYREXIA [None]
  - SHOCK [None]
  - URINARY INCONTINENCE [None]
